FAERS Safety Report 14391075 (Version 1)
Quarter: 2018Q1

REPORT INFORMATION
  Report Type: Spontaneous
  Country: US (occurrence: US)
  Receive Date: 20180116
  Receipt Date: 20180116
  Transmission Date: 20180509
  Serious: No
  Sender: FDA-Public Use
  Company Number: US-PFIZER INC-2018015847

PATIENT
  Age: 68 Year
  Sex: Female
  Weight: 52.16 kg

DRUGS (2)
  1. PREMARIN [Suspect]
     Active Substance: ESTROGENS, CONJUGATED
     Dosage: TAKES AMOUNT UP TO THE LINE ON APPLICATOR ONCE TO TWICE A WEEK
     Route: 067
  2. PREMARIN [Suspect]
     Active Substance: ESTROGENS, CONJUGATED
     Indication: VULVOVAGINAL DRYNESS
     Dosage: TAKES AMOUNT UP TO THE LINE ON APPLICATOR ONCE TO TWICE A WEEK
     Route: 067
     Dates: end: 2017

REACTIONS (1)
  - Vulvovaginal pruritus [Recovered/Resolved]

NARRATIVE: CASE EVENT DATE: 2017
